FAERS Safety Report 7349136-6 (Version None)
Quarter: 2011Q1

REPORT INFORMATION
  Report Type: 
  Country: None (occurrence: None)
  Receive Date: 20110314
  Receipt Date: 20110228
  Transmission Date: 20110831
  Serious: Yes (Hospitalization, Other)
  Sender: FDA-Public Use
  Company Number: US-TYCO HEALTHCARE/MALLINCKRODT-T201001931

PATIENT
  Sex: Female
  Weight: 82.358 kg

DRUGS (12)
  1. OMNISCAN [Suspect]
     Indication: NUCLEAR MAGNETIC RESONANCE IMAGING
     Dosage: UNK
     Dates: start: 20041202, end: 20041202
  2. PHOSLO [Concomitant]
     Dosage: UNK
  3. CLONIDINE [Concomitant]
     Dosage: UNK
  4. LASIX [Concomitant]
     Dosage: UNK
  5. CONTRAST MEDIA [Suspect]
     Indication: NUCLEAR MAGNETIC RESONANCE IMAGING
     Dosage: UNK
     Dates: start: 20040225, end: 20040225
  6. DILANTIN [Concomitant]
     Dosage: UNK
  7. OPTIMARK [Suspect]
     Indication: NUCLEAR MAGNETIC RESONANCE IMAGING
     Dosage: 20 ML, SINGLE
     Route: 042
     Dates: start: 20050831, end: 20050831
  8. OMNISCAN [Suspect]
     Dosage: 20 ML, SINGLE
     Dates: start: 20050628, end: 20050628
  9. CONTRAST MEDIA [Suspect]
     Dosage: UNK
     Dates: start: 20041202, end: 20041202
  10. NORVASC [Concomitant]
     Dosage: UNK
  11. ZOCOR [Concomitant]
     Dosage: UNK
  12. CYMBALTA [Concomitant]
     Dosage: UNK

REACTIONS (33)
  - SEPSIS [None]
  - PULMONARY VALVE INCOMPETENCE [None]
  - STAPHYLOCOCCAL ABSCESS [None]
  - BACK PAIN [None]
  - GAIT DISTURBANCE [None]
  - HYPERTENSIVE CRISIS [None]
  - VENOUS STENOSIS [None]
  - ARTERIOSCLEROSIS [None]
  - PLEURAL EFFUSION [None]
  - TRICUSPID VALVE INCOMPETENCE [None]
  - FALL [None]
  - OFF LABEL USE [None]
  - HYPERPARATHYROIDISM [None]
  - BRONCHITIS [None]
  - SINUS DISORDER [None]
  - FUNGAL INFECTION [None]
  - VENTRICULAR HYPERTROPHY [None]
  - STAPHYLOCOCCAL INFECTION [None]
  - DIABETIC NEUROPATHY [None]
  - SWELLING FACE [None]
  - NEPHROGENIC SYSTEMIC FIBROSIS [None]
  - CEREBROVASCULAR ACCIDENT [None]
  - VISUAL ACUITY REDUCED [None]
  - ABDOMINAL PAIN LOWER [None]
  - PARALYSIS [None]
  - CONVULSION [None]
  - ABSCESS [None]
  - EXERCISE TOLERANCE DECREASED [None]
  - CAROTID ARTERY STENOSIS [None]
  - VOMITING [None]
  - BALANCE DISORDER [None]
  - HEADACHE [None]
  - NAUSEA [None]
